FAERS Safety Report 5371511-X (Version None)
Quarter: 2007Q2

REPORT INFORMATION
  Report Type: 
  Country: None (occurrence: None)
  Receive Date: 20070615
  Receipt Date: 20061019
  Transmission Date: 20071010
  Serious: Yes (Other)
  Sender: FDA-Public Use
  Company Number: 200617399US

PATIENT
  Sex: Male

DRUGS (6)
  1. LANTUS [Suspect]
     Indication: DIABETES MELLITUS NON-INSULIN-DEPENDENT
     Dosage: 22 U QD; SC
     Route: 058
     Dates: end: 20060829
  2. LANTUS [Suspect]
     Indication: DIABETES MELLITUS NON-INSULIN-DEPENDENT
     Dosage: 20 U QD; SC
     Route: 058
     Dates: start: 20060830
  3. ATORVASTATIN CALCIUM (LIPITOR) [Concomitant]
  4. AVAPRO [Concomitant]
  5. CLOPIDOGREL (PLAVIX 01220701/) [Concomitant]
  6. METOPROLOL SUCCINATE (TOPROL) [Concomitant]

REACTIONS (2)
  - BLOOD GLUCOSE INCREASED [None]
  - HYPOGLYCAEMIA [None]
